FAERS Safety Report 15100709 (Version 1)
Quarter: 2018Q3

REPORT INFORMATION
  Report Type: Spontaneous
  Country: US (occurrence: US)
  Receive Date: 20180703
  Receipt Date: 20180703
  Transmission Date: 20181010
  Serious: Yes (Other)
  Sender: FDA-Public Use
  Company Number: US-AUROBINDO-AUR-APL-2018-032683

PATIENT
  Age: 59 Year
  Sex: Male

DRUGS (1)
  1. CLONIDINE 0.3 MG [Suspect]
     Active Substance: CLONIDINE
     Indication: PRODUCT USED FOR UNKNOWN INDICATION
     Dosage: PATIENT RECEIVED 0.6 MG ORAL CLONIDINE INSTEAD OF 0.3 MG ORAL CLONIDINE
     Route: 048

REACTIONS (6)
  - Toxicity to various agents [Recovered/Resolved]
  - Hypoxia [Recovered/Resolved]
  - Depressed level of consciousness [Recovered/Resolved]
  - Transcription medication error [Recovered/Resolved]
  - Lethargy [Recovered/Resolved]
  - Hypotension [Recovered/Resolved]
